FAERS Safety Report 9461322 (Version 1)
Quarter: 2013Q3

REPORT INFORMATION
  Report Type: Spontaneous
  Country: JP (occurrence: JP)
  Receive Date: 20130816
  Receipt Date: 20130816
  Transmission Date: 20140515
  Serious: Yes (Life-Threatening, Hospitalization)
  Sender: FDA-Public Use
  Company Number: JP-PAR PHARMACEUTICAL, INC-2013SCPR006095

PATIENT
  Sex: 0

DRUGS (2)
  1. DONEPEZIL HYDROCHLORIDE [Suspect]
     Indication: DEMENTIA ALZHEIMER^S TYPE
     Dosage: 5 MG, / DAY
     Route: 065
  2. AMLODIPINE [Suspect]
     Indication: HYPERTENSION
     Dosage: 5 MG, / DAY
     Route: 065

REACTIONS (3)
  - Torsade de pointes [Recovered/Resolved]
  - Adams-Stokes syndrome [Recovered/Resolved]
  - Atrial fibrillation [Recovered/Resolved]
